FAERS Safety Report 15330882 (Version 1)
Quarter: 2018Q3

REPORT INFORMATION
  Report Type: Report from Study
  Country: US (occurrence: US)
  Receive Date: 20180829
  Receipt Date: 20180829
  Transmission Date: 20181010
  Serious: Yes (Death)
  Sender: FDA-Public Use
  Company Number: US-EXELIXIS-CABO-18015625

PATIENT
  Age: 73 Year
  Sex: Female

DRUGS (7)
  1. NICOTROL [Concomitant]
     Active Substance: NICOTINE
  2. SIMVASTATIN. [Concomitant]
     Active Substance: SIMVASTATIN
  3. CABOMETYX [Suspect]
     Active Substance: CABOZANTINIB S-MALATE
     Indication: PRODUCT USED FOR UNKNOWN INDICATION
     Dosage: UNK
  4. DEXAMETHASON [Concomitant]
     Active Substance: DEXAMETHASONE
  5. POLYETH GLYC [Concomitant]
     Active Substance: POLYETHYLENE GLYCOLS
  6. PANTOPRAZOLE [Concomitant]
     Active Substance: PANTOPRAZOLE
  7. HYDROCHLOROTH [Concomitant]
     Active Substance: HYDROCHLOROTHIAZIDE

REACTIONS (1)
  - Death [Fatal]

NARRATIVE: CASE EVENT DATE: 20180822
